FAERS Safety Report 6668832-7 (Version None)
Quarter: 2010Q2

REPORT INFORMATION
  Report Type: 
  Country: None (occurrence: None)
  Receive Date: 20100401
  Receipt Date: 20100322
  Transmission Date: 20101027
  Serious: Yes (Other)
  Sender: FDA-Public Use
  Company Number: 2010AL001822

PATIENT
  Sex: Male

DRUGS (8)
  1. DOXAZOSIN MESYLATE [Suspect]
  2. RANITIDINE [Suspect]
  3. EDRONAX [Concomitant]
  4. COLOFAC [Concomitant]
  5. MOTILIUM [Concomitant]
  6. NEXIUM [Concomitant]
  7. BISOPROLOL [Concomitant]
  8. BENDROFLUMETHIAZIDE [Concomitant]

REACTIONS (3)
  - DRUG INTERACTION [None]
  - FATIGUE [None]
  - SEDATION [None]
